FAERS Safety Report 21186858 (Version 1)
Quarter: 2022Q3

REPORT INFORMATION
  Report Type: Other
  Country: US (occurrence: None)
  Receive Date: 20220808
  Receipt Date: 20220808
  Transmission Date: 20221027
  Serious: Yes (Other)
  Sender: FDA-Public Use
  Company Number: US-Navinta LLC-000287

PATIENT

DRUGS (3)
  1. RIBAVIRIN [Suspect]
     Active Substance: RIBAVIRIN
     Indication: Hepatitis E
     Dosage: 600 MG OF RIBAVIRIN PER DAY
     Route: 048
  2. RIBAVIRIN [Suspect]
     Active Substance: RIBAVIRIN
     Indication: Hepatitis E
     Dosage: 1000 MG OF RIBAVIRIN PER DAY
     Route: 048
  3. RIBAVIRIN [Suspect]
     Active Substance: RIBAVIRIN
     Indication: Hepatitis E
     Dosage: 400 MG OF RIBAVIRIN PER DAY
     Route: 048

REACTIONS (3)
  - Hepatitis E [Recovered/Resolved]
  - Disease recurrence [Recovered/Resolved]
  - Anaemia [Unknown]
